FAERS Safety Report 5673626-5 (Version None)
Quarter: 2008Q1

REPORT INFORMATION
  Report Type: 
  Country: None (occurrence: None)
  Receive Date: 20080319
  Receipt Date: 20080310
  Transmission Date: 20080703
  Serious: Yes (Other)
  Sender: FDA-Public Use
  Company Number: US-PFIZER INC-2008013688

PATIENT
  Sex: Female

DRUGS (2)
  1. LIPITOR [Suspect]
     Dates: start: 20070701, end: 20070101
  2. ANTIDEPRESSANTS [Concomitant]

REACTIONS (3)
  - ACTIVITIES OF DAILY LIVING IMPAIRED [None]
  - DEPRESSION [None]
  - MYALGIA [None]
